FAERS Safety Report 9221769 (Version 1)
Quarter: 2013Q2

REPORT INFORMATION
  Report Type: Spontaneous
  Country: US (occurrence: US)
  Receive Date: 20130410
  Receipt Date: 20130410
  Transmission Date: 20140414
  Serious: Yes (Hospitalization)
  Sender: FDA-Public Use
  Company Number: US-ACCORD-017050

PATIENT
  Age: 65 Year
  Sex: Female
  Weight: 60.91 kg

DRUGS (9)
  1. HYDROCHLOROTHIAZIDE [Suspect]
     Indication: PRODUCT USED FOR UNKNOWN INDICATION
     Dosage: FOR MANY YEARS (FOR 35 YEARS)
  2. ATORVASTATIN [Concomitant]
  3. VIVELLE DOT [Concomitant]
     Dosage: 0.025 MG
  4. IRBESARTAN [Concomitant]
  5. OMEPRAZOLE [Concomitant]
     Dosage: FOR TWO YEARS
  6. DIAZEPAM [Concomitant]
     Dosage: 5 MG Q8H AS?NEEDED
  7. LEVOTHYROXINE [Concomitant]
  8. METOPROLOL [Concomitant]
  9. ACETAMINOPHEN [Concomitant]
     Dosage: AS NEEDED

REACTIONS (4)
  - Hyponatraemia [Recovering/Resolving]
  - Dysarthria [Unknown]
  - VIIth nerve paralysis [Recovered/Resolved]
  - Hypokalaemia [Unknown]
